FAERS Safety Report 9121000 (Version 1)
Quarter: 2013Q1

REPORT INFORMATION
  Report Type: Report from Study
  Country: US (occurrence: US)
  Receive Date: 20130226
  Receipt Date: 20130226
  Transmission Date: 20140127
  Serious: Yes (Other)
  Sender: FDA-Public Use
  Company Number: US-ROCHE-1193724

PATIENT
  Age: 17 Year
  Sex: Female

DRUGS (2)
  1. ACTEMRA [Suspect]
     Indication: POLYARTHRITIS
     Route: 042
     Dates: start: 201206
  2. METHOTREXATE [Concomitant]
     Route: 058

REACTIONS (3)
  - Contusion [Unknown]
  - Poor venous access [Unknown]
  - Haemorrhage [Not Recovered/Not Resolved]
